FAERS Safety Report 7275186-4 (Version None)
Quarter: 2011Q1

REPORT INFORMATION
  Report Type: 
  Country: None (occurrence: None)
  Receive Date: 20110204
  Receipt Date: 20110124
  Transmission Date: 20110831
  Serious: Yes (Other)
  Sender: FDA-Public Use
  Company Number: PHEH2007US11237

PATIENT
  Sex: Female
  Weight: 62.585 kg

DRUGS (34)
  1. FOSAMAX [Suspect]
     Indication: OSTEOPOROSIS
  2. KENALOG [Concomitant]
     Dosage: 0.1% / APPLY 2 X DAILY
     Route: 061
  3. DECADRON [Concomitant]
     Indication: DERMATITIS CONTACT
     Dosage: 8 MG
     Dates: start: 20080502
  4. CALCIUM [Concomitant]
     Dosage: UNK
  5. AVELOX [Concomitant]
     Dosage: 400 MG / DAILY
     Route: 048
  6. PHENERGAN [Concomitant]
     Indication: NAUSEA
     Dosage: 25 MG / EVERY 6 HRS AS NEEDED
     Dates: start: 20080609
  7. ANTIVERT ^PFIZER^ [Concomitant]
     Indication: VERTIGO
     Dosage: 25 MG/ EVERY 6 HRS OR 4 X DAILY
     Route: 048
     Dates: start: 20080609
  8. COMBIPATCH [Suspect]
     Indication: MENOPAUSE
     Dosage: 0.05 UNK, UNK
  9. PROVERA [Suspect]
     Indication: MENOPAUSE
     Dosage: 10 MG, UNK
     Dates: start: 19940101, end: 19950101
  10. CLARITIN [Suspect]
     Indication: SEASONAL ALLERGY
     Dosage: UNK, UNK
     Route: 048
     Dates: start: 19960101, end: 20040101
  11. CLARINEX                                /DEN/ [Concomitant]
     Indication: HYPERSENSITIVITY
     Dosage: UNK
  12. TRAZODONE HCL [Concomitant]
  13. MULTI-VITAMINS [Concomitant]
     Dosage: UNK
  14. ESTRATEST [Suspect]
     Dates: start: 19960101, end: 19970101
  15. PREMARIN [Suspect]
     Indication: MENOPAUSE
     Dosage: 0.625 MG/DAY, UNK
     Dates: start: 19970101, end: 19970101
  16. ESTRACE [Concomitant]
     Dosage: 1 MG / DAILY
     Route: 048
  17. TERAZOL 1 [Concomitant]
     Indication: VAGINAL INFECTION
     Dosage: UNK
  18. ESTRADERM [Suspect]
     Indication: MENOPAUSE
     Dosage: 0.05 MG/DAY, UNK
     Route: 062
     Dates: start: 19950101, end: 19960101
  19. ESTRATEST [Suspect]
     Indication: MENOPAUSE
     Dosage: UNK
     Dates: start: 19940101, end: 19970101
  20. EFFEXOR [Suspect]
     Indication: MENOPAUSAL SYMPTOMS
     Dates: start: 20001201, end: 20010101
  21. MONISTAT [Concomitant]
     Indication: VAGINAL INFECTION
     Dosage: UNK
  22. MOBIC [Concomitant]
     Dosage: 15 MG / DAILY
  23. MPA [Suspect]
     Indication: MENOPAUSE
     Dosage: 2.5 MG, UNK
     Dates: start: 19950101, end: 19970101
  24. MEDROL [Concomitant]
     Dosage: 4 MG
  25. MUCINEX [Concomitant]
     Dosage: UNK
  26. VIVELLE [Suspect]
     Indication: MENOPAUSE
     Dosage: UNK
     Route: 062
     Dates: start: 19960101, end: 19960101
  27. ALLERGY [Concomitant]
     Indication: HYPERSENSITIVITY
     Dosage: UNK
  28. ZOLOFT [Concomitant]
     Dosage: 50 MG / DAILY
  29. NASACORT [Concomitant]
     Dosage: 55 MCG / 1 SPRAY EACH NOSTRIL 3 X DAILY
     Route: 045
  30. PREMPRO [Suspect]
     Indication: MENOPAUSE
     Dosage: 0.625 MG/2.5 MG/DAY, UNK
     Dates: start: 19970101, end: 20000101
  31. NASONEX [Concomitant]
     Indication: SINUSITIS
     Dosage: 2 SPRAYS/ 2 X DAILY
     Route: 045
  32. MULTIVITAMIN [Concomitant]
     Dosage: UNK
  33. ALLEGRA [Concomitant]
     Dosage: 180 MG / DAILY
     Route: 048
  34. ADVAIR DISKUS 100/50 [Concomitant]
     Dosage: UNK, 2 X DAILY

REACTIONS (16)
  - MUSCULOSKELETAL PAIN [None]
  - BREAST NECROSIS [None]
  - NASAL SEPTUM DEVIATION [None]
  - FIBROCYSTIC BREAST DISEASE [None]
  - ARTHRALGIA [None]
  - BIOPSY BREAST ABNORMAL [None]
  - DYSPNOEA [None]
  - OSTEOPOROSIS [None]
  - HOT FLUSH [None]
  - SINUSITIS [None]
  - PELVIC PAIN [None]
  - UTERINE LEIOMYOMA [None]
  - BREAST CANCER [None]
  - MAMMOGRAM ABNORMAL [None]
  - ROTATOR CUFF SYNDROME [None]
  - SEBORRHOEIC KERATOSIS [None]
